FAERS Safety Report 20074971 (Version 1)
Quarter: 2021Q4

REPORT INFORMATION
  Report Type: Spontaneous
  Country: US (occurrence: US)
  Receive Date: 20211116
  Receipt Date: 20211116
  Transmission Date: 20220304
  Serious: Yes (Disabling, Other)
  Sender: FDA-Public Use
  Company Number: US-PURDUE-USA-2020-0284744

PATIENT
  Sex: Female

DRUGS (28)
  1. OXYCONTIN [Suspect]
     Active Substance: OXYCODONE HYDROCHLORIDE
     Indication: Pain
     Dosage: 15 MG, UNK
     Route: 048
  2. OXYCONTIN [Suspect]
     Active Substance: OXYCODONE HYDROCHLORIDE
     Dosage: 30 MG, QID PRN
     Route: 048
  3. HYSINGLA ER [Suspect]
     Active Substance: HYDROCODONE BITARTRATE
     Indication: Product used for unknown indication
     Dosage: UNKNOWN
     Route: 048
  4. DILAUDID [Suspect]
     Active Substance: HYDROMORPHONE HYDROCHLORIDE
     Indication: Product used for unknown indication
     Dosage: UNKNOWN
     Route: 048
  5. OXYCODONE HYDROCHLORIDE [Suspect]
     Active Substance: OXYCODONE HYDROCHLORIDE
     Indication: Pain
     Dosage: 30 MG, Q4- 6H PRN (1-2 TABLETS)
     Route: 048
  6. OXYCODONE HYDROCHLORIDE [Suspect]
     Active Substance: OXYCODONE HYDROCHLORIDE
     Dosage: 20 MG, UNK
     Route: 048
  7. HYDROMORPHONE HYDROCHLORIDE [Suspect]
     Active Substance: HYDROMORPHONE HYDROCHLORIDE
     Indication: Product used for unknown indication
     Dosage: UNKNOWN
     Route: 048
  8. MS CONTIN [Suspect]
     Active Substance: MORPHINE SULFATE
     Indication: Product used for unknown indication
     Dosage: UNKNOWN
     Route: 048
  9. HYDROMORPHONE [Suspect]
     Active Substance: HYDROMORPHONE
     Indication: Product used for unknown indication
     Dosage: 8 MG, UNK
     Route: 048
  10. HYDROCODONE BITARTRATE AND ACETAMINOPHEN [Suspect]
     Active Substance: ACETAMINOPHEN\HYDROCODONE BITARTRATE
     Indication: Product used for unknown indication
     Dosage: UNKNOWN
     Route: 048
  11. ACETAMINOPHEN\OXYCODONE HYDROCHLORIDE [Suspect]
     Active Substance: ACETAMINOPHEN\OXYCODONE HYDROCHLORIDE
     Indication: Product used for unknown indication
     Dosage: (10-325 MG), QID PRN
     Route: 048
  12. OXYCODONE HYDROCHLORIDE [Suspect]
     Active Substance: OXYCODONE HYDROCHLORIDE
     Indication: Product used for unknown indication
     Dosage: UNKNOWN
     Route: 065
  13. TRAMADOL [Suspect]
     Active Substance: TRAMADOL
     Indication: Product used for unknown indication
     Dosage: 50 MG, BID PRN
     Route: 048
  14. OXYCODONE [Suspect]
     Active Substance: OXYCODONE
     Indication: Product used for unknown indication
     Dosage: UNKNOWN
     Route: 048
  15. PALLADONE [Suspect]
     Active Substance: HYDROMORPHONE HYDROCHLORIDE
     Indication: Product used for unknown indication
     Dosage: UNKNOWN
     Route: 048
  16. MORPHINE SULFATE [Suspect]
     Active Substance: MORPHINE SULFATE
     Indication: Product used for unknown indication
     Dosage: 30 MG, UNK
     Route: 048
  17. DHC PLUS [Suspect]
     Active Substance: ACETAMINOPHEN\CAFFEINE\DIHYDROCODEINE BITARTRATE
     Indication: Product used for unknown indication
     Dosage: UNKNOWN
     Route: 048
  18. DURAGESIC [Suspect]
     Active Substance: FENTANYL
     Indication: Pain
     Dosage: 50 MCG, UNK
     Route: 062
  19. DURAGESIC [Suspect]
     Active Substance: FENTANYL
     Dosage: 75 MCG, UNK
     Route: 062
  20. NORCO [Suspect]
     Active Substance: ACETAMINOPHEN\HYDROCODONE BITARTRATE
     Indication: Pain
     Dosage: (10-325 MG)
     Route: 065
  21. LYRICA [Suspect]
     Active Substance: PREGABALIN
     Indication: Pain
     Dosage: 50 MG, UNK
     Route: 065
  22. LISINOPRIL [Suspect]
     Active Substance: LISINOPRIL
     Indication: Product used for unknown indication
     Dosage: 10 MG, UNK
     Route: 065
  23. LISINOPRIL [Suspect]
     Active Substance: LISINOPRIL
     Dosage: 40 MG, DAILY
     Route: 048
  24. IBUPROFEN [Suspect]
     Active Substance: IBUPROFEN
     Indication: Pain
     Dosage: 800 MG, Q8H PRN
     Route: 048
  25. DAYPRO [Suspect]
     Active Substance: OXAPROZIN
     Indication: Product used for unknown indication
     Dosage: UNKNOWN
     Route: 065
  26. FENTANYL [Suspect]
     Active Substance: FENTANYL
     Indication: Product used for unknown indication
     Dosage: 1 PATCH, Q72H
     Route: 062
  27. OXYMORPHONE [Suspect]
     Active Substance: OXYMORPHONE
     Indication: Analgesic therapy
     Dosage: 20 MG, UNK
     Route: 065
  28. OPANA [Suspect]
     Active Substance: OXYMORPHONE HYDROCHLORIDE
     Indication: Analgesic therapy
     Dosage: UNKNOWN
     Route: 065

REACTIONS (15)
  - Disability [Unknown]
  - Overdose [Unknown]
  - Drug dependence [Unknown]
  - Pain [Unknown]
  - Emotional distress [Unknown]
  - Injury [Unknown]
  - Drug withdrawal syndrome [Unknown]
  - Depression [Unknown]
  - Constipation [Unknown]
  - Incontinence [Unknown]
  - Fatigue [Unknown]
  - Headache [Unknown]
  - Hypoaesthesia [Unknown]
  - Paraesthesia [Unknown]
  - Sleep disorder [Unknown]
